FAERS Safety Report 19522863 (Version 1)
Quarter: 2021Q3

REPORT INFORMATION
  Report Type: Spontaneous
  Country: FR (occurrence: FR)
  Receive Date: 20210712
  Receipt Date: 20210712
  Transmission Date: 20211014
  Serious: Yes (Congenital Anomaly)
  Sender: FDA-Public Use
  Company Number: FR-ABBVIE-21K-056-3983678-00

PATIENT
  Sex: Female

DRUGS (1)
  1. DEPAKINE [Suspect]
     Active Substance: VALPROATE SODIUM
     Indication: MATERNAL EXPOSURE TIMING UNSPECIFIED
     Route: 064

REACTIONS (17)
  - Nasal disorder [Unknown]
  - Impulsive behaviour [Unknown]
  - Ear disorder [Unknown]
  - Oropharyngeal discomfort [Unknown]
  - Ear infection [Unknown]
  - Attention deficit hyperactivity disorder [Unknown]
  - Conductive deafness [Unknown]
  - Dysgraphia [Unknown]
  - Foetal exposure during pregnancy [Unknown]
  - Speech disorder [Unknown]
  - Cognitive disorder [Unknown]
  - Memory impairment [Unknown]
  - Dyslexia [Unknown]
  - Anxiety [Unknown]
  - Speech disorder developmental [Unknown]
  - Behaviour disorder [Unknown]
  - Respiratory tract infection [Not Recovered/Not Resolved]
